FAERS Safety Report 7848665-6 (Version None)
Quarter: 2011Q4

REPORT INFORMATION
  Report Type: 
  Country: None (occurrence: None)
  Receive Date: 20111026
  Receipt Date: 20111018
  Transmission Date: 20120403
  Serious: Yes (Hospitalization)
  Sender: FDA-Public Use
  Company Number: US-BIOGENIDEC-2011BI037762

PATIENT
  Age: 53 Year
  Sex: Female

DRUGS (4)
  1. AVONEX [Suspect]
     Indication: MULTIPLE SCLEROSIS
     Route: 030
     Dates: start: 20051028
  2. VICODIN [Concomitant]
     Indication: PAIN
  3. ANXIETY MEDICATION (NOS) [Concomitant]
     Indication: ANXIETY
  4. BLOOD PRESSURE MEDICATION (NOS) [Concomitant]
     Indication: HYPERTENSION

REACTIONS (7)
  - ARTHRITIS INFECTIVE [None]
  - INFLUENZA [None]
  - ARTHROPATHY [None]
  - MEMORY IMPAIRMENT [None]
  - MUSCLE SPASMS [None]
  - HYPOAESTHESIA [None]
  - GAIT DISTURBANCE [None]
